FAERS Safety Report 5242602-9 (Version None)
Quarter: 2007Q1

REPORT INFORMATION
  Report Type: 
  Country: None (occurrence: None)
  Receive Date: 20070221
  Receipt Date: 20070215
  Transmission Date: 20070707
  Serious: Yes (Other)
  Sender: FDA-Public Use
  Company Number: US-AVENTIS-200620039US

PATIENT
  Age: 63 Year
  Sex: Female

DRUGS (3)
  1. LANTUS [Suspect]
     Dosage: DOSE: UNK
     Route: 051
  2. LEVEMIR [Concomitant]
     Dosage: DOSE: UNK
  3. FUROSEMIDE [Concomitant]
     Dosage: DOSE: UNK

REACTIONS (8)
  - CARDIAC FAILURE CONGESTIVE [None]
  - CONTUSION [None]
  - DYSPNOEA [None]
  - EYE SWELLING [None]
  - HEADACHE [None]
  - NASOPHARYNGITIS [None]
  - OEDEMA PERIPHERAL [None]
  - SINUS HEADACHE [None]
